FAERS Safety Report 14129466 (Version 3)
Quarter: 2018Q1

REPORT INFORMATION
  Report Type: Report from Study
  Country: IT (occurrence: IT)
  Receive Date: 20171026
  Receipt Date: 20180108
  Transmission Date: 20180508
  Serious: Yes (Other)
  Sender: FDA-Public Use
  Company Number: IT-CELGENEUS-ITA-20171005770

PATIENT
  Age: 59 Year
  Sex: Male

DRUGS (1)
  1. REVLIMID [Suspect]
     Active Substance: LENALIDOMIDE
     Indication: PLASMA CELL MYELOMA
     Dosage: 10 MILLIGRAM
     Route: 048
     Dates: start: 20141028

REACTIONS (1)
  - Malignant melanoma [Not Recovered/Not Resolved]

NARRATIVE: CASE EVENT DATE: 20170918
